FAERS Safety Report 16149043 (Version 1)
Quarter: 2019Q2

REPORT INFORMATION
  Report Type: Report from Study
  Country: IT (occurrence: IT)
  Receive Date: 20190402
  Receipt Date: 20190402
  Transmission Date: 20190711
  Serious: Yes (Other)
  Sender: FDA-Public Use
  Company Number: IT-TEVA-2019-IT-1031813

PATIENT
  Age: 68 Year
  Sex: Male

DRUGS (4)
  1. RYTMONORM [Suspect]
     Active Substance: PROPAFENONE
     Indication: TACHYARRHYTHMIA
     Dosage: 650 MILLIGRAM DAILY;
     Route: 048
     Dates: start: 20181130
  2. KARVEZIDE [Concomitant]
     Active Substance: HYDROCHLOROTHIAZIDE\IRBESARTAN
  3. PRADAXA [Concomitant]
     Active Substance: DABIGATRAN ETEXILATE MESYLATE
  4. VYTORIN 10MG/10 MG COMPRESSE [Concomitant]

REACTIONS (6)
  - Nausea [Recovering/Resolving]
  - Vertigo [Recovering/Resolving]
  - Syncope [Recovering/Resolving]
  - Hyperhidrosis [Recovering/Resolving]
  - Vomiting [Recovering/Resolving]
  - Dizziness [Recovering/Resolving]

NARRATIVE: CASE EVENT DATE: 20181214
